FAERS Safety Report 8566510-0 (Version None)
Quarter: 2012Q3

REPORT INFORMATION
  Report Type: 
  Country: None (occurrence: None)
  Receive Date: 20120730
  Receipt Date: 20120730
  Transmission Date: 20120928
  Serious: Yes (Hospitalization)
  Sender: FDA-Public Use
  Company Number: None

PATIENT
  Sex: Female
  Weight: 119 kg

DRUGS (1)
  1. TAXOL [Suspect]
     Dosage: 3 MG
     Dates: start: 20120507

REACTIONS (6)
  - PELVIC MASS [None]
  - ENTERITIS [None]
  - RADIATION INJURY [None]
  - PORTAL VEIN THROMBOSIS [None]
  - DIARRHOEA [None]
  - ABDOMINAL PAIN [None]
